FAERS Safety Report 9930777 (Version 1)
Quarter: 2014Q1

REPORT INFORMATION
  Report Type: Spontaneous
  Country: US (occurrence: US)
  Receive Date: 20140227
  Receipt Date: 20140227
  Transmission Date: 20141002
  Serious: No
  Sender: FDA-Public Use
  Company Number: US-AMGEN-USASP2014001639

PATIENT
  Age: 25 Year
  Sex: Female

DRUGS (3)
  1. ENBREL [Suspect]
     Indication: RHEUMATOID ARTHRITIS
     Dosage: 50 MG, QWK
     Route: 065
     Dates: start: 20131003, end: 201311
  2. ENBREL [Suspect]
     Indication: ARTHRITIS REACTIVE
  3. PREDNISONE [Concomitant]
     Dosage: UNK

REACTIONS (9)
  - Hypersensitivity [Not Recovered/Not Resolved]
  - Erythema [Unknown]
  - Rash erythematous [Recovered/Resolved]
  - Pruritus generalised [Recovered/Resolved]
  - Lip disorder [Recovered/Resolved]
  - Lip pain [Recovered/Resolved]
  - Swelling face [Recovered/Resolved]
  - Nasopharyngitis [Recovered/Resolved]
  - Injection site erythema [Recovered/Resolved]
